FAERS Safety Report 13035171 (Version 1)
Quarter: 2016Q4

REPORT INFORMATION
  Report Type: Spontaneous
  Country: SI (occurrence: IN)
  Receive Date: 20161216
  Receipt Date: 20161216
  Transmission Date: 20170207
  Serious: Yes (Death, Other)
  Sender: FDA-Public Use
  Company Number: SI-BAYER-2016-238666

PATIENT

DRUGS (2)
  1. ULTRAVIST [Suspect]
     Active Substance: IOPROMIDE
     Indication: ANGIOGRAM
     Dosage: 20 ML, ONCE
  2. DOXORUBICIN [Suspect]
     Active Substance: DOXORUBICIN

REACTIONS (2)
  - Cerebral ischaemia [None]
  - Hepatic failure [Fatal]
